FAERS Safety Report 8167860-2 (Version None)
Quarter: 2012Q1

REPORT INFORMATION
  Report Type: 
  Country: None (occurrence: None)
  Receive Date: 20120227
  Receipt Date: 20120216
  Transmission Date: 20120608
  Serious: Yes (Other)
  Sender: FDA-Public Use
  Company Number: US-BAYER-2012-016257

PATIENT

DRUGS (1)
  1. ALEVE (CAPLET) [Suspect]
     Indication: PAIN IN EXTREMITY
     Dosage: UNK
     Dates: start: 20120101

REACTIONS (3)
  - PRURITUS [None]
  - DRUG HYPERSENSITIVITY [None]
  - URTICARIA [None]
